FAERS Safety Report 7454019-7 (Version None)
Quarter: 2011Q2

REPORT INFORMATION
  Report Type: 
  Country: None (occurrence: None)
  Receive Date: 20110502
  Receipt Date: 20110421
  Transmission Date: 20111010
  Serious: Yes (Other)
  Sender: FDA-Public Use
  Company Number: US-ASTRAZENECA-2011SE23716

PATIENT
  Sex: Female

DRUGS (7)
  1. SEROQUEL [Suspect]
     Indication: BIPOLAR I DISORDER
     Route: 048
     Dates: start: 20100101
  2. LITHIUM CARBONATE [Concomitant]
  3. REMERON [Concomitant]
  4. DEPAKOTE [Concomitant]
  5. SEROQUEL [Suspect]
     Route: 048
  6. SEROQUEL [Suspect]
     Route: 048
  7. SEROQUEL [Suspect]
     Route: 048
     Dates: start: 20110301

REACTIONS (18)
  - APHASIA [None]
  - FEELING ABNORMAL [None]
  - MEMORY IMPAIRMENT [None]
  - NIGHTMARE [None]
  - MYALGIA [None]
  - GASTROINTESTINAL TRACT IRRITATION [None]
  - INCREASED UPPER AIRWAY SECRETION [None]
  - DRUG DOSE OMISSION [None]
  - STARING [None]
  - DELIRIUM [None]
  - SUICIDAL IDEATION [None]
  - CONFUSIONAL STATE [None]
  - SOMNOLENCE [None]
  - ALTERED STATE OF CONSCIOUSNESS [None]
  - DYSPNOEA [None]
  - UNRESPONSIVE TO STIMULI [None]
  - DRY MOUTH [None]
  - NASAL CONGESTION [None]
